FAERS Safety Report 17689746 (Version 1)
Quarter: 2020Q2

REPORT INFORMATION
  Report Type: Spontaneous
  Country: EC (occurrence: EC)
  Receive Date: 20200421
  Receipt Date: 20200421
  Transmission Date: 20200714
  Serious: Yes (Other)
  Sender: FDA-Public Use
  Company Number: EC-IPSEN BIOPHARMACEUTICALS, INC.-2020-07374

PATIENT
  Age: 64 Year
  Sex: Male
  Weight: 157 kg

DRUGS (1)
  1. DYSPORT [Suspect]
     Active Substance: ABOBOTULINUMTOXINA
     Indication: FACIAL SPASM
     Dosage: 500 IU
     Route: 058
     Dates: start: 20171028, end: 20180601

REACTIONS (2)
  - Ocular neoplasm [Recovered/Resolved]
  - Pterygium [Unknown]

NARRATIVE: CASE EVENT DATE: 20190801
